FAERS Safety Report 6834608-0 (Version None)
Quarter: 2010Q3

REPORT INFORMATION
  Report Type: 
  Country: None (occurrence: None)
  Receive Date: 20100712
  Receipt Date: 20070609
  Transmission Date: 20110219
  Serious: No
  Sender: FDA-Public Use
  Company Number: US-PFIZER INC-2007028894

PATIENT
  Sex: Male
  Weight: 65.77 kg

DRUGS (9)
  1. CHANTIX [Suspect]
     Indication: SMOKING CESSATION THERAPY
     Dosage: FREQUENCY: BID
     Route: 048
     Dates: start: 20070306, end: 20070409
  2. CHANTIX [Suspect]
     Indication: TOBACCO ABUSE
  3. NICODERM [Suspect]
     Indication: SMOKING CESSATION THERAPY
     Dates: start: 20070401
  4. PRAVASTATIN [Concomitant]
     Indication: BLOOD CHOLESTEROL INCREASED
  5. DICLOFENAC SODIUM [Concomitant]
     Indication: ARTHRITIS
  6. CITALOPRAM HYDROBROMIDE [Concomitant]
  7. CLONAZEPAM [Concomitant]
  8. PRILOSEC [Concomitant]
     Indication: GASTROOESOPHAGEAL REFLUX DISEASE
  9. NEXIUM [Concomitant]
     Indication: GASTROOESOPHAGEAL REFLUX DISEASE

REACTIONS (7)
  - EMOTIONAL DISTRESS [None]
  - FEELING ABNORMAL [None]
  - FLATULENCE [None]
  - HYPERHIDROSIS [None]
  - INSOMNIA [None]
  - NAUSEA [None]
  - NIGHTMARE [None]
